FAERS Safety Report 24306071 (Version 1)
Quarter: 2024Q3

REPORT INFORMATION
  Report Type: Spontaneous
  Country: US (occurrence: US)
  Receive Date: 20240911
  Receipt Date: 20240911
  Transmission Date: 20241016
  Serious: No
  Sender: TEVA
  Company Number: US-TEVA-VS-3237677

PATIENT
  Age: 24 Year
  Sex: Male

DRUGS (2)
  1. UZEDY [Suspect]
     Active Substance: RISPERIDONE
     Indication: Bipolar I disorder
     Dosage: 200 MG FREQUENCY: ONCE
     Route: 065
     Dates: start: 20240821, end: 20240821
  2. ZYPREXA [Concomitant]
     Active Substance: OLANZAPINE
     Indication: Agitation
     Route: 065
     Dates: start: 20240821

REACTIONS (2)
  - Tachycardia [Unknown]
  - Product use in unapproved indication [Unknown]

NARRATIVE: CASE EVENT DATE: 20240821
